FAERS Safety Report 6115645-0 (Version None)
Quarter: 2009Q1

REPORT INFORMATION
  Report Type: 
  Country: None (occurrence: None)
  Receive Date: 20090313
  Receipt Date: 20090306
  Transmission Date: 20090719
  Serious: Yes (Other)
  Sender: FDA-Public Use
  Company Number: DE-WYE-G03180009

PATIENT
  Sex: Female
  Weight: 79 kg

DRUGS (1)
  1. VENLAFAXINE HCL [Suspect]
     Indication: ANXIETY DISORDER
     Route: 048
     Dates: start: 20080501, end: 20090201

REACTIONS (2)
  - SUDDEN HEARING LOSS [None]
  - TINNITUS [None]
